FAERS Safety Report 15156475 (Version 4)
Quarter: 2018Q3

REPORT INFORMATION
  Report Type: Report from Study
  Country: PT (occurrence: DE)
  Receive Date: 20180717
  Receipt Date: 20180917
  Transmission Date: 20181010
  Serious: Yes (Death, Other)
  Sender: FDA-Public Use
  Company Number: PT-SUNOVION-2018SUN002817

PATIENT

DRUGS (3)
  1. LAMOTRIGIN [Concomitant]
     Active Substance: LAMOTRIGINE
     Indication: EPILEPSY
     Dosage: 400 MG, QD
     Route: 048
     Dates: end: 201806
  2. ZEBINIX [Suspect]
     Active Substance: ESLICARBAZEPINE ACETATE
     Indication: EPILEPSY
     Dosage: 800 MG, QD
     Route: 048
     Dates: start: 201710, end: 20180626
  3. CITALOPRAM [Concomitant]
     Active Substance: CITALOPRAM HYDROBROMIDE
     Indication: DEPRESSION
     Dosage: 10 MG, QD
     Route: 048
     Dates: end: 201806

REACTIONS (1)
  - Completed suicide [Fatal]

NARRATIVE: CASE EVENT DATE: 201806
